FAERS Safety Report 7280709-5 (Version None)
Quarter: 2011Q1

REPORT INFORMATION
  Report Type: 
  Country: None (occurrence: None)
  Receive Date: 20110208
  Receipt Date: 20110128
  Transmission Date: 20110831
  Serious: Yes (Death, Hospitalization)
  Sender: FDA-Public Use
  Company Number: B0696650A

PATIENT
  Sex: Female

DRUGS (6)
  1. CONTRAMAL [Concomitant]
     Dosage: 150MG PER DAY
     Route: 065
  2. ASPIRIN [Concomitant]
     Dosage: 160MG PER DAY
     Route: 065
  3. AVLOCARDYL [Concomitant]
     Route: 065
  4. ARIXTRA [Suspect]
     Dosage: 7.5MG PER DAY
     Route: 058
     Dates: start: 20101005, end: 20101010
  5. ALDACTONE [Concomitant]
     Route: 065
  6. FEMARA [Concomitant]
     Route: 065

REACTIONS (17)
  - INJECTION SITE HAEMATOMA [None]
  - SINUS BRADYCARDIA [None]
  - ABDOMINAL PAIN [None]
  - PALLOR [None]
  - PIGMENTATION DISORDER [None]
  - CARDIAC ARREST [None]
  - HYPOTENSION [None]
  - BLOOD CREATININE INCREASED [None]
  - BLOOD POTASSIUM INCREASED [None]
  - HYPERHIDROSIS [None]
  - HAEMOGLOBIN DECREASED [None]
  - ALTERED STATE OF CONSCIOUSNESS [None]
  - SHOCK HAEMORRHAGIC [None]
  - ARTERIAL HAEMORRHAGE [None]
  - PROTHROMBIN LEVEL DECREASED [None]
  - ABDOMINAL WALL HAEMATOMA [None]
  - BLOOD LACTIC ACID INCREASED [None]
